FAERS Safety Report 8506158-7 (Version None)
Quarter: 2012Q3

REPORT INFORMATION
  Report Type: 
  Country: None (occurrence: None)
  Receive Date: 20120712
  Receipt Date: 20120710
  Transmission Date: 20120928
  Serious: Yes (Death)
  Sender: FDA-Public Use
  Company Number: PHEH2012US013583

PATIENT
  Sex: Male

DRUGS (10)
  1. OXYCODONE HCL [Concomitant]
  2. MAGNESIUM SULFATE [Concomitant]
  3. TRAZODONE HYDROCHLORIDE [Concomitant]
  4. BACLOFEN [Concomitant]
  5. LORAZEPAM [Concomitant]
  6. SENNA-MINT WAF [Concomitant]
  7. METOPROLOL TARTRATE [Concomitant]
  8. CEPACOL [Concomitant]
  9. ASPIRIN [Concomitant]
  10. TASIGNA [Suspect]
     Indication: CHRONIC MYELOID LEUKAEMIA
     Dosage: 400 MG, BID
     Route: 048
     Dates: start: 20120427

REACTIONS (1)
  - DEATH [None]
